FAERS Safety Report 4307442-3 (Version None)
Quarter: 2004Q1

REPORT INFORMATION
  Report Type: 
  Country: None (occurrence: None)
  Receive Date: 20040226
  Receipt Date: 20040210
  Transmission Date: 20041129
  Serious: Yes (Death)
  Sender: FDA-Public Use
  Company Number: UK066066

PATIENT
  Age: 23 Year
  Sex: Female

DRUGS (1)
  1. NEULASTA [Suspect]
     Indication: CHEMOTHERAPY
     Dosage: SC
     Route: 058

REACTIONS (2)
  - NEUTROPHIL COUNT INCREASED [None]
  - SEPTIC SHOCK [None]
